FAERS Safety Report 17690040 (Version 1)
Quarter: 2020Q2

REPORT INFORMATION
  Report Type: Spontaneous
  Country: JP (occurrence: JP)
  Receive Date: 20200421
  Receipt Date: 20200421
  Transmission Date: 20200714
  Serious: Yes (Hospitalization)
  Sender: FDA-Public Use
  Company Number: JP-JNJFOC-20200418264

PATIENT

DRUGS (2)
  1. DUROTEP [Suspect]
     Active Substance: FENTANYL
     Indication: PAIN
     Route: 062
  2. TRAMAL [Concomitant]
     Active Substance: TRAMADOL
     Indication: PAIN
     Dosage: UNKNOWN
     Route: 065

REACTIONS (1)
  - Hospitalisation [Unknown]
